FAERS Safety Report 8796867 (Version 1)
Quarter: 2012Q4

REPORT INFORMATION
  Report Type: Report from Study
  Country: JP (occurrence: JP)
  Receive Date: 20120919
  Receipt Date: 20120919
  Transmission Date: 20130627
  Serious: Yes (Hospitalization, Other)
  Sender: FDA-Public Use
  Company Number: JP-VERTEX PHARMACEUTICAL INC.-AE-2012-009473

PATIENT
  Age: 49 Year
  Sex: Female

DRUGS (17)
  1. VX-950 [Suspect]
     Indication: HEPATITIS C
     Dosage: 1500 mg, qd
     Route: 048
     Dates: start: 20120223
  2. VX-950 [Suspect]
     Dosage: UNK
     Route: 048
     Dates: end: 20120412
  3. RIBAVIRIN [Suspect]
     Indication: HEPATITIS C
     Dosage: 800 mg, qd
     Route: 048
     Dates: start: 20120223, end: 20120314
  4. RIBAVIRIN [Suspect]
     Dosage: 400 mg, qd
     Route: 048
     Dates: start: 20120315, end: 20120328
  5. RIBAVIRIN [Suspect]
     Dosage: 200 mg, qd
     Route: 048
     Dates: start: 20120329
  6. RIBAVIRIN [Suspect]
     Dosage: UNK
     Route: 048
     Dates: end: 20120412
  7. RIBAVIRIN [Suspect]
     Dosage: 200 mg, qd
     Route: 048
     Dates: start: 20120426
  8. RIBAVIRIN [Suspect]
     Dosage: 400 mg, qd
     Route: 048
     Dates: start: 20120501
  9. RIBAVIRIN [Suspect]
     Dosage: 600 mg, qd
     Route: 048
     Dates: start: 20120524
  10. RIBAVIRIN [Suspect]
     Dosage: 400 mg, qd
     Route: 048
     Dates: start: 20120614
  11. RIBAVIRIN [Suspect]
     Dosage: 600 mg, qd
     Route: 048
     Dates: start: 20120621
  12. RIBAVIRIN [Suspect]
     Dosage: 400 mg, qd
     Route: 048
     Dates: start: 20120705
  13. RIBAVIRIN [Suspect]
     Dosage: 600 mg, qd
     Route: 048
     Dates: start: 20120712, end: 20120716
  14. PEGINTERFERON ALFA-2B [Suspect]
     Indication: HEPATITIS C
     Dosage: 1.5 UNK, UNK
     Route: 058
  15. PEGINTERFERON ALFA-2B [Suspect]
     Dosage: UNK
     Route: 058
     Dates: end: 20120412
  16. PEGINTERFERON ALFA-2B [Suspect]
     Dosage: 40 UNK, UNK
     Route: 058
     Dates: start: 20120426
  17. PEGINTERFERON ALFA-2B [Suspect]
     Dosage: 80 UNK, UNK
     Route: 058
     Dates: start: 20120501, end: 20120809

REACTIONS (2)
  - Restless legs syndrome [Recovered/Resolved]
  - Restless legs syndrome [Not Recovered/Not Resolved]
